FAERS Safety Report 8242845-6 (Version None)
Quarter: 2012Q1

REPORT INFORMATION
  Report Type: 
  Country: None (occurrence: None)
  Receive Date: 20120329
  Receipt Date: 20120319
  Transmission Date: 20120608
  Serious: Yes (Other)
  Sender: FDA-Public Use
  Company Number: AT-JNJFOC-20120309271

PATIENT
  Age: 62 Year
  Sex: Female

DRUGS (2)
  1. XEPLION [Suspect]
     Route: 030
  2. XEPLION [Suspect]
     Indication: PRODUCT USED FOR UNKNOWN INDICATION
     Route: 030
     Dates: start: 20111129

REACTIONS (2)
  - HYPERVIGILANCE [None]
  - PSYCHOTIC DISORDER [None]
